FAERS Safety Report 8180360-9 (Version None)
Quarter: 2012Q1

REPORT INFORMATION
  Report Type: 
  Country: None (occurrence: None)
  Receive Date: 20120302
  Receipt Date: 20120228
  Transmission Date: 20120608
  Serious: Yes (Other)
  Sender: FDA-Public Use
  Company Number: US-PFIZER INC-2012054023

PATIENT
  Sex: Female

DRUGS (3)
  1. EFFEXOR XR [Suspect]
  2. PROTONIX [Suspect]
  3. PRISTIQ [Suspect]

REACTIONS (2)
  - HEAD INJURY [None]
  - ROAD TRAFFIC ACCIDENT [None]
